FAERS Safety Report 16268651 (Version 1)
Quarter: 2019Q2

REPORT INFORMATION
  Report Type: Spontaneous
  Country: BD (occurrence: BD)
  Receive Date: 20190503
  Receipt Date: 20190503
  Transmission Date: 20190711
  Serious: Yes (Hospitalization, Other)
  Sender: FDA-Public Use
  Company Number: BD-MICRO LABS LIMITED-ML2019-01124

PATIENT
  Age: 89 Year
  Sex: Male

DRUGS (1)
  1. DIPHENHYDRAMINE HYDROCHLORIDE. [Suspect]
     Active Substance: DIPHENHYDRAMINE HYDROCHLORIDE
     Dosage: 80 TABLETS OF DIPHENHYDRAMINE HYDROCHLORIDE (50 MG PER TABLET) ABOUT 6 HOURS PRIOR TO ARRIVAL AND UN

REACTIONS (6)
  - Loss of consciousness [Recovering/Resolving]
  - Gastrointestinal sounds abnormal [Recovering/Resolving]
  - Urinary retention [Recovering/Resolving]
  - Delirium [Recovering/Resolving]
  - Dry mouth [Recovering/Resolving]
  - Overdose [Unknown]
